FAERS Safety Report 19798830 (Version 1)
Quarter: 2021Q3

REPORT INFORMATION
  Report Type: Spontaneous
  Country: US (occurrence: US)
  Receive Date: 20210907
  Receipt Date: 20210907
  Transmission Date: 20211014
  Serious: No
  Sender: FDA-Public Use
  Company Number: US-PFIZER INC-2021714839

PATIENT
  Age: 59 Year
  Sex: Female
  Weight: 60.77 kg

DRUGS (1)
  1. IBRANCE [Suspect]
     Active Substance: PALBOCICLIB
     Indication: BREAST CANCER
     Dosage: 100 MG CYCLIC (1 DAILY FOR 21 DAYS)
     Route: 048
     Dates: start: 202104

REACTIONS (2)
  - Abdominal pain upper [Unknown]
  - White blood cell count decreased [Unknown]
